FAERS Safety Report 11433571 (Version 3)
Quarter: 2017Q3

REPORT INFORMATION
  Report Type: Report from Study
  Country: FR (occurrence: FR)
  Receive Date: 20150831
  Receipt Date: 20170707
  Transmission Date: 20171127
  Serious: Yes (Other)
  Sender: FDA-Public Use
  Company Number: FR-ROCHE-1315909

PATIENT

DRUGS (13)
  1. RIBAVIRIN. [Suspect]
     Active Substance: RIBAVIRIN
     Indication: HEPATITIS C
     Route: 065
  2. DACLATASVIR. [Suspect]
     Active Substance: DACLATASVIR
     Indication: HEPATITIS C
     Route: 065
  3. PEG-INTERFERON ALFA 2A [Suspect]
     Active Substance: PEGINTERFERON ALFA-2A
     Indication: HEPATITIS C
     Route: 065
  4. SOFOSBUVIR [Suspect]
     Active Substance: SOFOSBUVIR
     Indication: HEPATITIS C
     Route: 065
  5. PARITAPREVIR [Suspect]
     Active Substance: PARITAPREVIR
     Indication: HEPATITIS C
     Route: 065
  6. TELAPREVIR [Suspect]
     Active Substance: TELAPREVIR
     Indication: HEPATITIS C
     Route: 065
  7. RITONAVIR. [Suspect]
     Active Substance: RITONAVIR
     Indication: HEPATITIS C
     Route: 065
  8. DASABUVIR [Suspect]
     Active Substance: DASABUVIR
     Indication: HEPATITIS C
     Route: 065
  9. LEDIPASVIR [Suspect]
     Active Substance: LEDIPASVIR
     Indication: HEPATITIS C
     Route: 065
  10. OMBITASVIR [Suspect]
     Active Substance: OMBITASVIR
     Indication: HEPATITIS C
     Route: 065
  11. BOCEPREVIR [Suspect]
     Active Substance: BOCEPREVIR
     Indication: HEPATITIS C
     Route: 065
  12. SIMEPREVIR [Suspect]
     Active Substance: SIMEPREVIR
     Indication: HEPATITIS C
     Route: 065
  13. ASUNAPREVIR [Suspect]
     Active Substance: ASUNAPREVIR
     Indication: HEPATITIS C
     Route: 065

REACTIONS (26)
  - Virologic failure [Unknown]
  - Infection [Unknown]
  - Fatigue [Unknown]
  - Gastrointestinal disorder [Unknown]
  - Cough [Unknown]
  - Myalgia [Unknown]
  - Gynaecomastia [Unknown]
  - Epilepsy [Unknown]
  - Decreased appetite [Unknown]
  - Leukopenia [Unknown]
  - Rash [Unknown]
  - Skin disorder [Unknown]
  - Drug intolerance [Unknown]
  - Fibrosis [Unknown]
  - Affective disorder [Unknown]
  - Arthralgia [Unknown]
  - Treatment failure [Unknown]
  - Hepatic failure [Unknown]
  - Insomnia [Unknown]
  - Anaemia [Unknown]
  - Hepatic cirrhosis [Unknown]
  - Intentional underdose [Unknown]
  - Thrombocytopenia [Unknown]
  - Mental disorder [Unknown]
  - Headache [Unknown]
  - Libido decreased [Unknown]
